FAERS Safety Report 6170632-1 (Version None)
Quarter: 2009Q2

REPORT INFORMATION
  Report Type: 
  Country: None (occurrence: None)
  Receive Date: 20090428
  Receipt Date: 20090423
  Transmission Date: 20091009
  Serious: Yes (Other)
  Sender: FDA-Public Use
  Company Number: CA-ELI_LILLY_AND_COMPANY-CA200904005753

PATIENT
  Age: 83 Year
  Sex: Female

DRUGS (7)
  1. FORTEO [Suspect]
     Indication: OSTEOPOROSIS
     Dosage: 20 UG, DAILY (1/D)
     Dates: start: 20070620
  2. VITAMIN D [Concomitant]
  3. VASOTEC [Concomitant]
  4. ASCORBIC ACID [Concomitant]
  5. VITAMIN B NOS [Concomitant]
  6. QUININE [Concomitant]
  7. ADVAIR HFA [Concomitant]

REACTIONS (2)
  - FALL [None]
  - PELVIC FRACTURE [None]
